FAERS Safety Report 11079047 (Version 4)
Quarter: 2015Q4

REPORT INFORMATION
  Report Type: Report from Study
  Country: FR (occurrence: FR)
  Receive Date: 20150430
  Receipt Date: 20151021
  Transmission Date: 20160304
  Serious: Yes (Other)
  Sender: FDA-Public Use
  Company Number: FR-009507513-1504FRA001683

PATIENT
  Age: 67 Year
  Sex: Female

DRUGS (2)
  1. PEMBROLIZUMAB. [Suspect]
     Active Substance: PEMBROLIZUMAB
     Indication: MALIGNANT MELANOMA STAGE IV
     Dosage: 120 MG, ONCE (SINGLE DOSE)
     Route: 042
     Dates: start: 20150306, end: 20150306
  2. LEVOTHYROX [Concomitant]
     Active Substance: LEVOTHYROXINE
     Indication: HYPERTHYROIDISM
     Dosage: 75 MICROGRAM (MCG) ALTERNATIVELY WITH 50 MCG EVERY DAY (QD)
     Route: 048
     Dates: start: 2011

REACTIONS (2)
  - Autoimmune thyroiditis [Unknown]
  - Autoimmune hepatitis [Unknown]

NARRATIVE: CASE EVENT DATE: 2015
